FAERS Safety Report 5088626-6 (Version None)
Quarter: 2006Q3

REPORT INFORMATION
  Report Type: 
  Country: None (occurrence: None)
  Receive Date: 20060822
  Receipt Date: 20060810
  Transmission Date: 20061208
  Serious: Yes (Life-Threatening, Hospitalization)
  Sender: FDA-Public Use
  Company Number: CLOF-10312

PATIENT
  Age: 69 Year
  Sex: Male
  Weight: 108.8633 kg

DRUGS (2)
  1. CLOFARABINE [Suspect]
     Indication: ACUTE MYELOID LEUKAEMIA
     Dosage: 30 MG/M2 DAILY IV
     Route: 042
     Dates: start: 20040819, end: 20040913
  2. CYTOSINE ARABINOSIDE [Suspect]
     Indication: ACUTE MYELOID LEUKAEMIA
     Dosage: 230 MG DAILY IV
     Route: 042
     Dates: start: 20040819, end: 20040913

REACTIONS (10)
  - CLOSTRIDIAL INFECTION [None]
  - ENTEROCOLITIS INFECTIOUS [None]
  - FEBRILE NEUTROPENIA [None]
  - INFECTION [None]
  - KLEBSIELLA INFECTION [None]
  - MYALGIA [None]
  - PANCYTOPENIA [None]
  - PNEUMONIA [None]
  - PYREXIA [None]
  - THROMBOCYTOPENIA [None]
